FAERS Safety Report 7555507-5 (Version None)
Quarter: 2011Q2

REPORT INFORMATION
  Report Type: 
  Country: None (occurrence: None)
  Receive Date: 20110617
  Receipt Date: 20110605
  Transmission Date: 20111010
  Serious: Yes (Other)
  Sender: FDA-Public Use
  Company Number: PHHY2011FR48938

PATIENT
  Age: 57 Year
  Sex: Male

DRUGS (8)
  1. MYCOPHENOLATE MEFETIL [Suspect]
     Dosage: 2 G, QD
  2. RIBAVIRIN [Concomitant]
     Dosage: 17 MG/KG, QD
     Route: 048
  3. CYCLOSPORINE [Suspect]
     Indication: IMMUNOSUPPRESSION
     Dosage: 85 MG, BID
  4. PREDNISONE [Suspect]
     Dosage: 65 MG, QD
  5. MYCOPHENOLATE MEFETIL [Suspect]
     Indication: IMMUNOSUPPRESSION
     Dosage: 3 G, QD
  6. CYCLOSPORINE [Suspect]
     Dosage: 150 MG, QD
  7. PREDNISONE [Suspect]
     Dosage: 5 MG, QD
  8. ANTI-THYMOCYTE GLOBULIN NOS [Suspect]
     Indication: IMMUNOSUPPRESSION

REACTIONS (7)
  - HEPATITIS E [None]
  - ASPARTATE AMINOTRANSFERASE INCREASED [None]
  - ALANINE AMINOTRANSFERASE INCREASED [None]
  - HEPATIC LESION [None]
  - HEPATIC FIBROSIS [None]
  - LIVER INJURY [None]
  - DISEASE PROGRESSION [None]
